FAERS Safety Report 20616947 (Version 1)
Quarter: 2022Q1

REPORT INFORMATION
  Report Type: Spontaneous
  Country: CA (occurrence: None)
  Receive Date: 20220321
  Receipt Date: 20220321
  Transmission Date: 20220423
  Serious: Yes (Other)
  Sender: FDA-Public Use
  Company Number: CA-PFIZER INC-202200410276

PATIENT
  Age: 16 Year
  Sex: Female

DRUGS (3)
  1. METHOTREXATE [Suspect]
     Active Substance: METHOTREXATE
     Indication: Crohn^s disease
     Route: 065
     Dates: start: 2022
  2. FOLIC ACID [Concomitant]
     Active Substance: FOLIC ACID
     Route: 065
  3. IRON [Concomitant]
     Active Substance: IRON
     Route: 065

REACTIONS (3)
  - Product use in unapproved indication [Unknown]
  - Crohn^s disease [Not Recovered/Not Resolved]
  - Drug ineffective for unapproved indication [Unknown]

NARRATIVE: CASE EVENT DATE: 20220101
